FAERS Safety Report 12604630 (Version 2)
Quarter: 2016Q4

REPORT INFORMATION
  Report Type: Spontaneous
  Country: JP (occurrence: JP)
  Receive Date: 20160728
  Receipt Date: 20161107
  Transmission Date: 20170207
  Serious: Yes (Other)
  Sender: FDA-Public Use
  Company Number: PHJP2016JP021202

PATIENT
  Age: 43 Year
  Sex: Male

DRUGS (1)
  1. COA566 [Suspect]
     Active Substance: ARTEMETHER\LUMEFANTRINE
     Indication: MALARIA
     Dosage: UNK
     Route: 048

REACTIONS (5)
  - Renal impairment [Unknown]
  - Extremity necrosis [Recovering/Resolving]
  - Hypothermia [Unknown]
  - Hepatic function abnormal [Unknown]
  - Purpura fulminans [Unknown]
